FAERS Safety Report 6070087-1 (Version None)
Quarter: 2009Q1

REPORT INFORMATION
  Report Type: 
  Country: None (occurrence: None)
  Receive Date: 20090209
  Receipt Date: 20090130
  Transmission Date: 20090719
  Serious: Yes (Life-Threatening, Disabling, Other)
  Sender: FDA-Public Use
  Company Number: JP-AVENTIS-200813621JP

PATIENT
  Age: 33 Year
  Sex: Female
  Weight: 30 kg

DRUGS (1)
  1. LASIX [Suspect]

REACTIONS (7)
  - ALTERED STATE OF CONSCIOUSNESS [None]
  - BLOOD POTASSIUM DECREASED [None]
  - BLOOD SODIUM DECREASED [None]
  - BLOOD URIC ACID INCREASED [None]
  - DRUG ABUSE [None]
  - RENAL FAILURE ACUTE [None]
  - SHOCK [None]
